FAERS Safety Report 7308499-8 (Version None)
Quarter: 2011Q1

REPORT INFORMATION
  Report Type: 
  Country: None (occurrence: None)
  Receive Date: 20110211
  Receipt Date: 20110127
  Transmission Date: 20110831
  Serious: Yes (Life-Threatening, Hospitalization)
  Sender: FDA-Public Use
  Company Number: AUR-APL-2011-00410

PATIENT
  Age: 51 Year
  Sex: Male

DRUGS (9)
  1. AMLODIPINE [Concomitant]
  2. ISOSORBIDE MONONITRATE [Concomitant]
  3. QUINAPRIL [Concomitant]
  4. INSULIN [Concomitant]
  5. SPIRONOLACTONE [Concomitant]
  6. SIMVASTATIN [Suspect]
     Dosage: 20MG-DAILY
  7. BISOPROLOL FUMARATE [Concomitant]
  8. ASPIRIN [Concomitant]
  9. INDAPAMIDE [Concomitant]

REACTIONS (12)
  - SYNCOPE [None]
  - ACUTE MYOCARDIAL INFARCTION [None]
  - ATRIOVENTRICULAR BLOCK COMPLETE [None]
  - HYPERKALAEMIA [None]
  - CORONARY ARTERY DISEASE [None]
  - CORONARY ARTERY OCCLUSION [None]
  - CONFUSIONAL STATE [None]
  - TRICUSPID VALVE INCOMPETENCE [None]
  - RHABDOMYOLYSIS [None]
  - MITRAL VALVE INCOMPETENCE [None]
  - DIARRHOEA [None]
  - RESPIRATORY ACIDOSIS [None]
